FAERS Safety Report 9813460 (Version 1)
Quarter: 2014Q1

REPORT INFORMATION
  Report Type: Spontaneous
  Country: FR (occurrence: FR)
  Receive Date: 20140113
  Receipt Date: 20140113
  Transmission Date: 20141002
  Serious: Yes (Hospitalization)
  Sender: FDA-Public Use
  Company Number: FR-B.I. PHARMACEUTICALS,INC./RIDGEFIELD-2014-BI-00912FF

PATIENT
  Age: 65 Year
  Sex: Male

DRUGS (2)
  1. SIFROL [Suspect]
     Dosage: 0.52 MG
     Route: 048
     Dates: start: 20130522, end: 201306
  2. SIFROL [Suspect]
     Dosage: 1.05 MG
     Route: 048
     Dates: start: 201306, end: 201310

REACTIONS (3)
  - Kyphosis [Not Recovered/Not Resolved]
  - Dystonia [Not Recovered/Not Resolved]
  - Back pain [Not Recovered/Not Resolved]
